FAERS Safety Report 9842208 (Version 2)
Quarter: 2014Q1

REPORT INFORMATION
  Report Type: Report from Study
  Country: US (occurrence: US)
  Receive Date: 20140124
  Receipt Date: 20140225
  Transmission Date: 20141002
  Serious: Yes (Death, Hospitalization)
  Sender: FDA-Public Use
  Company Number: US-GLAXOSMITHKLINE-A1057545A

PATIENT
  Age: 38 Year
  Sex: Male

DRUGS (16)
  1. PAZOPANIB [Suspect]
     Indication: NEOPLASM
     Dates: start: 20130718
  2. INVESTIGATIONAL STUDY DRUG [Suspect]
     Indication: NEOPLASM
     Route: 042
  3. COUMADIN [Concomitant]
     Dates: start: 20130115
  4. IBUPROFEN [Concomitant]
     Dates: start: 20130830
  5. OXYCODONE [Concomitant]
     Dates: start: 20130905
  6. COMPAZINE [Concomitant]
     Dates: start: 20130910
  7. LANSOPRAZOLE [Concomitant]
     Dates: start: 20130910
  8. LISINOPRIL [Concomitant]
     Dates: start: 20131011
  9. NORVASC [Concomitant]
     Dates: start: 20131022
  10. CLONIDINE [Concomitant]
     Dates: start: 20131022
  11. METHYLPREDNISOLONE [Concomitant]
  12. SIMETHICONE [Concomitant]
  13. PREDNISONE [Concomitant]
  14. MORPHINE [Concomitant]
  15. HYDROCODONE [Concomitant]
  16. KETOROLAC [Concomitant]

REACTIONS (3)
  - Hepatic failure [Fatal]
  - Abdominal pain [Fatal]
  - Renal cell carcinoma [Fatal]
